FAERS Safety Report 9106149 (Version 3)
Quarter: 2013Q2

REPORT INFORMATION
  Report Type: Spontaneous
  Country: IE (occurrence: IE)
  Receive Date: 20130220
  Receipt Date: 20130624
  Transmission Date: 20140414
  Serious: Yes (Death, Other)
  Sender: FDA-Public Use
  Company Number: IE-VERTEX PHARMACEUTICALS INC.-2013-002373

PATIENT
  Age: 65 Year
  Sex: Male

DRUGS (4)
  1. INCIVO [Suspect]
     Indication: HEPATITIS C
     Dosage: 750 MG, TID
     Route: 048
     Dates: start: 20121023, end: 20121226
  2. PEGINTERFERON ALFA [Suspect]
     Indication: HEPATITIS C
     Dates: start: 20121023, end: 20121226
  3. RIBAVIRIN [Suspect]
     Indication: HEPATITIS C
     Dosage: 1000 MG, QD
     Dates: start: 20121023
  4. RIBAVIRIN [Suspect]
     Dates: end: 20121226

REACTIONS (18)
  - Hypotension [Fatal]
  - Sepsis [Fatal]
  - Hepatic failure [Fatal]
  - Haemophilia [Unknown]
  - Haemarthrosis [Unknown]
  - Atelectasis [Unknown]
  - Headache [Unknown]
  - Staphylococcal sepsis [Unknown]
  - Poor quality sleep [Unknown]
  - Atrial fibrillation [Unknown]
  - Dyspnoea [Unknown]
  - Dehydration [Unknown]
  - Pleural effusion [Unknown]
  - Depressed level of consciousness [Unknown]
  - Renal failure [Unknown]
  - Oedema peripheral [Unknown]
  - Anaemia [Unknown]
  - Thrombocytopenia [Unknown]
